FAERS Safety Report 8169618-7 (Version None)
Quarter: 2012Q1

REPORT INFORMATION
  Report Type: 
  Country: None (occurrence: None)
  Receive Date: 20120228
  Receipt Date: 20120221
  Transmission Date: 20120608
  Serious: Yes (Hospitalization, Other)
  Sender: FDA-Public Use
  Company Number: US-SANOFI-AVENTIS-2012SA002188

PATIENT
  Age: 50 Year
  Sex: Female
  Weight: 77 kg

DRUGS (6)
  1. ZOLOFT [Concomitant]
     Indication: ANXIETY
  2. APIDRA [Suspect]
     Dosage: VIA PUMP
     Route: 058
     Dates: start: 20090101
  3. ZOCOR [Concomitant]
  4. ZYRTEC [Concomitant]
     Dosage: ONE TABLET DAILY
  5. SYNTHROID [Concomitant]
     Indication: HYPOTHYROIDISM
  6. VITAMINS NOS [Concomitant]
     Dosage: ONE TABLET DAILY

REACTIONS (4)
  - DIABETIC KETOACIDOSIS [None]
  - PRODUCT QUALITY ISSUE [None]
  - BLOOD GLUCOSE INCREASED [None]
  - DEHYDRATION [None]
